FAERS Safety Report 12893531 (Version 1)
Quarter: 2016Q4

REPORT INFORMATION
  Report Type: Spontaneous
  Country: US (occurrence: US)
  Receive Date: 20161027
  Receipt Date: 20161027
  Transmission Date: 20170207
  Serious: No
  Sender: FDA-Public Use
  Company Number: None

PATIENT
  Age: 37 Year
  Sex: Female
  Weight: 72 kg

DRUGS (1)
  1. GENERIC BACTRIM [Suspect]
     Active Substance: SULFAMETHOXAZOLE\TRIMETHOPRIM
     Indication: CELLULITIS
     Dosage: ?          QUANTITY:14 TABLET(S);?
     Route: 048
     Dates: start: 20161018, end: 20161026

REACTIONS (1)
  - Urticaria [None]

NARRATIVE: CASE EVENT DATE: 20161027
